FAERS Safety Report 6508219-0 (Version None)
Quarter: 2009Q4

REPORT INFORMATION
  Report Type: 
  Country: None (occurrence: None)
  Receive Date: 20091221
  Receipt Date: 20081216
  Transmission Date: 20100525
  Serious: No
  Sender: FDA-Public Use
  Company Number: US-ASTRAZENECA-2008UW28117

PATIENT
  Age: 75 Year
  Sex: Female

DRUGS (8)
  1. CRESTOR [Suspect]
     Indication: HYPERCHOLESTEROLAEMIA
     Dosage: 5 MG
     Route: 048
  2. BLOOD PRESSURE MEDICATION [Concomitant]
  3. PROBENAMIDE [Concomitant]
  4. PROPRANOLOL [Concomitant]
  5. LASIX [Concomitant]
  6. POTASSIUM [Concomitant]
  7. COLCHICINE [Concomitant]
  8. CARDIZEM [Concomitant]

REACTIONS (3)
  - ARTHRITIS [None]
  - MYALGIA [None]
  - PAIN IN EXTREMITY [None]
